FAERS Safety Report 15192609 (Version 1)
Quarter: 2018Q3

REPORT INFORMATION
  Report Type: Spontaneous
  Country: ES (occurrence: ES)
  Receive Date: 20180725
  Receipt Date: 20180725
  Transmission Date: 20181010
  Serious: Yes (Hospitalization)
  Sender: FDA-Public Use
  Company Number: ES-TEVA-2018-ES-868301

PATIENT
  Age: 88 Year
  Sex: Male

DRUGS (11)
  1. DOXAZOSIN [Concomitant]
     Active Substance: DOXAZOSIN\DOXAZOSIN MESYLATE
     Dosage: DOSAGE UNIT FREQUENCY: 6 MG. DOSE: 6 MG. NO. SHOTS PER FREQUENCY UNIT: 1. FREQUENCY UNIT: 1 DAY.
     Route: 048
  2. PROFER 40 MG COMPRIMIDOS SOLUBLES [Concomitant]
     Dosage: DOSAGE UNIT FREQUENCY: 300 MG. DOSE: 300 MG. NO. SHOTS PER FREQUENCY UNIT: 1. FREQUENCY UNIT: 1 DAY
     Route: 048
  3. SINTROM 4 MG, 20 COMPRIMIDOS [Concomitant]
     Dosage: SPL
     Route: 048
  4. OLMESARTAN MEDOXOMILO (2930A) [Suspect]
     Active Substance: OLMESARTAN MEDOXOMIL
     Indication: HYPERTENSION
     Dosage: DOSAGE UNIT FREQUENCY: 40 MG. DOSE:: 40 MG. NO. SHOTS PER FREQUENCY UNIT: 1. FREQUENCY UNIT: 1 DAY
     Route: 048
     Dates: start: 2015, end: 20160229
  5. PARACETAMOL [Concomitant]
     Active Substance: ACETAMINOPHEN
     Dosage: DOSAGE UNIT FREQUENCY: 3 G. DOSE: 1 G. NO. SHOTS PER FREQUENCY UNIT: 3. FREQUENCY UNIT: 1 DAY.
     Route: 048
  6. OMEPRAZOL [Concomitant]
     Active Substance: OMEPRAZOLE
     Dosage: DOSAGE UNIT FREQUENCY: 20 MG. DOSE: 20 MG. NO. SHOTS PER FREQUENCY UNIT: 1. FREQUENCY UNIT: 1 DAY
     Route: 048
  7. TRAMADOL + PARACETAMOL [Concomitant]
     Active Substance: ACETAMINOPHEN\TRAMADOL
     Dosage: WHEN NECESSARY.
     Route: 048
  8. BUDESONIDA [Concomitant]
     Dosage: WHEN NECESSARY.
     Route: 045
  9. LORAZEPAM. [Concomitant]
     Active Substance: LORAZEPAM
     Dosage: DOSAGE UNIT FREQUENCY: 3 MG. DOSE: 1 MG. NO. SHOTS PER FREQUENCY UNIT: 3. FREQUENCY UNIT: 1 DAY.
     Route: 048
  10. ATORVASTATINA [Concomitant]
     Active Substance: ATORVASTATIN
     Dosage: DOSAGE UNIT FREQUENCY: 20 MG. DOSE: 20 MG. NO. SHOTS PER FREQUENCY UNIT: 1. FREQUENCY UNIT: 1 DAY.
     Route: 048
  11. ADENURIC  80 MG COMPRIMIDOS RECUBIERTOS CON PELICULA [Concomitant]
     Dosage: DOSAGE UNIT FREQUENCY: 80 MG. DOSE: 80 MG. NO. SHOTS PER FREQUENCY UNIT: 1. FREQUENCY UNIT: 1 DAY
     Route: 048

REACTIONS (2)
  - Weight decreased [Recovered/Resolved]
  - Diarrhoea [Recovered/Resolved]

NARRATIVE: CASE EVENT DATE: 201601
